FAERS Safety Report 16833766 (Version 1)
Quarter: 2019Q3

REPORT INFORMATION
  Report Type: Spontaneous
  Country: DE (occurrence: DE)
  Receive Date: 20190920
  Receipt Date: 20190920
  Transmission Date: 20191005
  Serious: Yes (Congenital Anomaly)
  Sender: FDA-Public Use
  Company Number: PHHY2019DE215712

PATIENT
  Sex: Female
  Weight: 3.26 kg

DRUGS (2)
  1. FEMIBION [Concomitant]
     Indication: FOETAL EXPOSURE DURING PREGNANCY
     Dosage: MATERNAL DOSE: UNK
     Route: 064
  2. LEVETIRACETAM. [Suspect]
     Active Substance: LEVETIRACETAM
     Indication: FOETAL EXPOSURE DURING PREGNANCY
     Dosage: MATERNAL DOSE: 3000 MG, QD (BIS 2000) (UNTIL GW 16: 3000 MG DAILY, THAN REDUCED TO 2000 MG/D)
     Route: 064

REACTIONS (3)
  - Infantile haemangioma [Unknown]
  - Arteriovenous malformation [Not Recovered/Not Resolved]
  - Atrial septal defect [Unknown]
